FAERS Safety Report 8644786 (Version 2)
Quarter: 2012Q4

REPORT INFORMATION
  Report Type: 
  Country: US (occurrence: US)
  Receive Date: 20120702
  Receipt Date: 20121015
  Transmission Date: 20130627
  Serious: Yes (Hospitalization)
  Sender: FDA-Public Use
  Company Number: US-BIOGENIDEC-2012BI022956

PATIENT
  Age: 64 Year
  Sex: Female

DRUGS (1)
  1. TYSABRI [Suspect]
     Indication: MULTIPLE SCLEROSIS
     Route: 042
     Dates: start: 20071127, end: 20120118

REACTIONS (4)
  - Urinary tract infection [Recovered/Resolved]
  - Disorientation [Unknown]
  - Upper respiratory tract infection [Recovered/Resolved]
  - Immune system disorder [Unknown]
